FAERS Safety Report 7952690-4 (Version None)
Quarter: 2011Q4

REPORT INFORMATION
  Report Type: 
  Country: None (occurrence: None)
  Receive Date: 20111120
  Receipt Date: 20111115
  Transmission Date: 20120403
  Serious: Yes (Other)
  Sender: FDA-Public Use
  Company Number: 7096062

PATIENT
  Sex: Female

DRUGS (1)
  1. LEVOTHYROXINE SODIUM [Suspect]
     Indication: AUTOIMMUNE THYROIDITIS

REACTIONS (3)
  - MATERNAL EXPOSURE DURING PREGNANCY [None]
  - DIABETES INSIPIDUS [None]
  - ADRENOCORTICAL INSUFFICIENCY ACUTE [None]
